FAERS Safety Report 8244982-9 (Version None)
Quarter: 2012Q1

REPORT INFORMATION
  Report Type: 
  Country: None (occurrence: None)
  Receive Date: 20120329
  Receipt Date: 20111107
  Transmission Date: 20120608
  Serious: No
  Sender: FDA-Public Use
  Company Number: US-MYLANLABS-2011S1023086

PATIENT
  Sex: Female

DRUGS (2)
  1. KLONOPIN [Concomitant]
     Route: 048
  2. FENTANYL-100 [Suspect]
     Indication: PAIN
     Dosage: QOD
     Route: 062
     Dates: start: 20090101

REACTIONS (2)
  - NIGHT SWEATS [None]
  - DRUG WITHDRAWAL SYNDROME [None]
